FAERS Safety Report 20062680 (Version 7)
Quarter: 2022Q1

REPORT INFORMATION
  Report Type: Report from Study
  Country: US (occurrence: US)
  Receive Date: 20211112
  Receipt Date: 20220319
  Transmission Date: 20220423
  Serious: Yes (Other)
  Sender: FDA-Public Use
  Company Number: US-NOVARTISTESTPH-NVSC2021US230230

PATIENT
  Sex: Male

DRUGS (2)
  1. ENTRESTO [Suspect]
     Active Substance: SACUBITRIL\VALSARTAN
     Indication: Product used for unknown indication
     Dosage: UNK
     Route: 065
     Dates: start: 202108
  2. ENTRESTO [Suspect]
     Active Substance: SACUBITRIL\VALSARTAN
     Dosage: UNK (DOSE INCREASED)
     Route: 065

REACTIONS (10)
  - Cardiac dysfunction [Not Recovered/Not Resolved]
  - Syncope [Unknown]
  - Tremor [Unknown]
  - Weight decreased [Recovering/Resolving]
  - Decreased activity [Unknown]
  - Burning sensation [Unknown]
  - Lip swelling [Unknown]
  - Swelling face [Unknown]
  - Pruritus [Not Recovered/Not Resolved]
  - Fatigue [Unknown]
